FAERS Safety Report 5608007-3 (Version None)
Quarter: 2008Q1

REPORT INFORMATION
  Report Type: 
  Country: None (occurrence: None)
  Receive Date: 20080130
  Receipt Date: 20080128
  Transmission Date: 20080703
  Serious: Yes (Other)
  Sender: FDA-Public Use
  Company Number: D0055941A

PATIENT
  Age: 21 Year
  Sex: Female

DRUGS (3)
  1. VIANI [Suspect]
     Route: 055
  2. CORTISONE [Concomitant]
     Route: 055
  3. VIANI MITE [Concomitant]
     Route: 055

REACTIONS (7)
  - BLOOD COUNT ABNORMAL [None]
  - CENTRAL OBESITY [None]
  - CUSHING'S SYNDROME [None]
  - DEPRESSION [None]
  - ERYTHEMA [None]
  - OEDEMA [None]
  - SKIN STRIAE [None]
